FAERS Safety Report 24553523 (Version 1)
Quarter: 2024Q4

REPORT INFORMATION
  Report Type: Spontaneous
  Country: US (occurrence: US)
  Receive Date: 20241028
  Receipt Date: 20241028
  Transmission Date: 20250114
  Serious: No
  Sender: ROCHE
  Company Number: US-ROCHE-3524432

PATIENT
  Sex: Female
  Weight: 74.84 kg

DRUGS (1)
  1. NUTROPIN AQ [Suspect]
     Active Substance: SOMATROPIN
     Indication: Pituitary tumour
     Dosage: 10 MG PEN, 5 MG PEN
     Route: 058

REACTIONS (4)
  - Product storage error [Unknown]
  - No adverse event [Unknown]
  - Off label use [Unknown]
  - Product dose omission issue [Unknown]
